FAERS Safety Report 10030128 (Version 2)
Quarter: 2014Q1

REPORT INFORMATION
  Report Type: Spontaneous
  Country: US (occurrence: US)
  Receive Date: 20140323
  Receipt Date: 20140323
  Transmission Date: 20141002
  Serious: No
  Sender: FDA-Public Use
  Company Number: US-ALLERGAN-1303219US

PATIENT
  Age: 61 Year
  Sex: Female

DRUGS (12)
  1. LATISSE 0.03% [Suspect]
     Indication: GROWTH OF EYELASHES
     Dosage: 4 GTT, QHS
     Route: 061
     Dates: start: 201208
  2. CENTRUM SILVER                     /01292501/ [Concomitant]
     Indication: SUPPLEMENTATION THERAPY
     Dosage: UNK UNK, QD
     Route: 048
  3. CALTRATE PLUS                      /00108001/ [Concomitant]
     Indication: SUPPLEMENTATION THERAPY
     Dosage: UNK UNK, BID
     Route: 048
  4. MAGNESIUM [Concomitant]
     Indication: SUPPLEMENTATION THERAPY
     Dosage: 250 MG, UNK
     Route: 048
  5. LISINOPRIL [Concomitant]
     Indication: HYPERTENSION
     Dosage: 5 MG, QD
     Route: 048
  6. KLONOPIN [Concomitant]
     Indication: ANXIETY
     Dosage: 0.5 MG, QID
     Route: 048
  7. ZOCOR [Concomitant]
     Indication: BLOOD CHOLESTEROL INCREASED
     Dosage: 20 MG, QD
     Route: 048
  8. ABILIFY [Concomitant]
     Indication: DEPRESSION
     Dosage: 5 MG, UNK
     Route: 048
  9. EFFEXOR XR [Concomitant]
     Indication: DEPRESSION
     Dosage: 225 MG, QD
     Route: 048
  10. TYLENOL                            /00020001/ [Concomitant]
     Indication: PRODUCT USED FOR UNKNOWN INDICATION
     Dosage: UNK UNK, QD
     Route: 048
  11. MOTRIN [Concomitant]
     Indication: PRODUCT USED FOR UNKNOWN INDICATION
     Dosage: 800 MG, QD
     Route: 048
  12. PATADAY [Concomitant]
     Indication: EYE ALLERGY
     Dosage: UNK UNK, BI-WEEKLY
     Route: 047

REACTIONS (7)
  - Accidental exposure to product [Unknown]
  - Incorrect dose administered [Unknown]
  - Accidental exposure to product [Unknown]
  - Erythema [Recovered/Resolved]
  - Trichorrhexis [Recovered/Resolved]
  - Eye pain [Recovered/Resolved]
  - Drug ineffective [Unknown]
